FAERS Safety Report 23243212 (Version 1)
Quarter: 2023Q4

REPORT INFORMATION
  Report Type: Report from Study
  Country: CA (occurrence: CA)
  Receive Date: 20231130
  Receipt Date: 20231130
  Transmission Date: 20240109
  Serious: Yes (Hospitalization, Other)
  Sender: FDA-Public Use
  Company Number: CA-ALXN-A201810831

PATIENT
  Age: 71 Year
  Sex: Female
  Weight: 61 kg

DRUGS (3)
  1. SOLIRIS [Suspect]
     Active Substance: ECULIZUMAB
     Indication: Atypical haemolytic uraemic syndrome
     Dosage: UNK
     Route: 065
  2. SOLIRIS [Suspect]
     Active Substance: ECULIZUMAB
     Dosage: 1200 MILLIGRAM
     Route: 042
     Dates: start: 20150109
  3. SIROLIMUS [Concomitant]
     Active Substance: SIROLIMUS
     Indication: Toxicity to various agents
     Dosage: 2 MILLIGRAM, QD
     Route: 048
     Dates: start: 20141223

REACTIONS (2)
  - Chest pain [Recovered/Resolved]
  - Pneumocystis jirovecii pneumonia [Recovered/Resolved]

NARRATIVE: CASE EVENT DATE: 20180529
